FAERS Safety Report 21605167 (Version 1)
Quarter: 2022Q4

REPORT INFORMATION
  Report Type: Spontaneous
  Country: US (occurrence: None)
  Receive Date: 20221116
  Receipt Date: 20221116
  Transmission Date: 20230113
  Serious: No
  Sender: FDA-Public Use
  Company Number: None

PATIENT
  Age: 24 Year
  Sex: Female
  Weight: 51.75 kg

DRUGS (1)
  1. PYRIDIUM [Suspect]
     Active Substance: PHENAZOPYRIDINE
     Indication: Bladder disorder
     Dates: start: 19970101, end: 19970101

REACTIONS (2)
  - Abdominal pain [None]
  - Lacrimation increased [None]

NARRATIVE: CASE EVENT DATE: 19970101
